FAERS Safety Report 8492956-5 (Version None)
Quarter: 2012Q3

REPORT INFORMATION
  Report Type: 
  Country: None (occurrence: None)
  Receive Date: 20120706
  Receipt Date: 20120628
  Transmission Date: 20120928
  Serious: Yes (Disabling)
  Sender: FDA-Public Use
  Company Number: BE-GLAXOSMITHKLINE-B0811783A

PATIENT
  Sex: Male

DRUGS (2)
  1. LAMICTAL [Suspect]
     Indication: EPILEPSY
     Route: 048
     Dates: start: 20110808
  2. TEGRETOL [Concomitant]
     Indication: EPILEPSY
     Dosage: 300MG TWICE PER DAY
     Route: 048

REACTIONS (8)
  - FEAR [None]
  - INSOMNIA [None]
  - SLEEP DISORDER [None]
  - THOUGHT INSERTION [None]
  - OBSESSIVE-COMPULSIVE DISORDER [None]
  - DISTURBANCE IN ATTENTION [None]
  - THINKING ABNORMAL [None]
  - EDUCATIONAL PROBLEM [None]
